FAERS Safety Report 16358781 (Version 1)
Quarter: 2019Q2

REPORT INFORMATION
  Report Type: Spontaneous
  Country: GR (occurrence: GR)
  Receive Date: 20190527
  Receipt Date: 20190527
  Transmission Date: 20190711
  Serious: Yes (Disabling)
  Sender: FDA-Public Use
  Company Number: GR-ELI_LILLY_AND_COMPANY-GR201905008266

PATIENT
  Age: 30 Year
  Sex: Male
  Weight: 67 kg

DRUGS (4)
  1. ZYPREXA [Suspect]
     Active Substance: OLANZAPINE
     Indication: STRESS
     Dosage: 1 DOSAGE FORM, DAILY
     Route: 048
     Dates: start: 20181228
  2. STEDON [Concomitant]
     Active Substance: DIAZEPAM
     Indication: DEPRESSED MOOD
     Route: 048
     Dates: start: 20181228
  3. STEDON [Concomitant]
     Active Substance: DIAZEPAM
     Indication: STRESS
  4. ZYPREXA [Suspect]
     Active Substance: OLANZAPINE
     Indication: DEPRESSED MOOD

REACTIONS (1)
  - Abnormal behaviour [Unknown]

NARRATIVE: CASE EVENT DATE: 20190101
